FAERS Safety Report 4422537-1 (Version None)
Quarter: 2004Q3

REPORT INFORMATION
  Report Type: 
  Country: None (occurrence: None)
  Receive Date: 20040713
  Receipt Date: 20040524
  Transmission Date: 20050211
  Serious: No
  Sender: FDA-Public Use
  Company Number: PHEH2004US00930

PATIENT
  Age: 15 Month
  Sex: Female
  Weight: 9.1 kg

DRUGS (1)
  1. ELIDEL [Suspect]
     Indication: ECZEMA
     Dosage: QD, TOPICAL
     Route: 061
     Dates: start: 20040116, end: 20040116

REACTIONS (3)
  - ACCIDENTAL EXPOSURE [None]
  - ERYTHEMA OF EYELID [None]
  - LACRIMATION INCREASED [None]
